FAERS Safety Report 6295771-6 (Version None)
Quarter: 2009Q3

REPORT INFORMATION
  Report Type: 
  Country: None (occurrence: None)
  Receive Date: 20090804
  Receipt Date: 20090722
  Transmission Date: 20100115
  Serious: Yes (Other)
  Sender: FDA-Public Use
  Company Number: US-PFIZER INC-2009245217

PATIENT
  Sex: Male

DRUGS (1)
  1. DILANTIN-125 [Suspect]

REACTIONS (11)
  - ANTICONVULSANT DRUG LEVEL INCREASED [None]
  - DRUG TOXICITY [None]
  - EYE MOVEMENT DISORDER [None]
  - FALL [None]
  - GINGIVAL PAIN [None]
  - HYPOTENSION [None]
  - RASH [None]
  - SOMNOLENCE [None]
  - SPEECH DISORDER [None]
  - STOMATITIS [None]
  - SWOLLEN TONGUE [None]
